FAERS Safety Report 20230105 (Version 1)
Quarter: 2021Q4

REPORT INFORMATION
  Report Type: Report from Study
  Country: ES (occurrence: ES)
  Receive Date: 20211226
  Receipt Date: 20211226
  Transmission Date: 20220303
  Serious: Yes (Life-Threatening)
  Sender: FDA-Public Use
  Company Number: None

PATIENT
  Age: 32 Year
  Sex: Female

DRUGS (5)
  1. PREGABALIN [Interacting]
     Active Substance: PREGABALIN
     Indication: Suicide attempt
     Dosage: PREGABALINA (3897A),625 MG
     Route: 048
     Dates: start: 20200929, end: 20200929
  2. FENTANYL [Interacting]
     Active Substance: FENTANYL
     Indication: Suicide attempt
     Dosage: 2 PATCHES OF FENTANYL, 2 DF
     Route: 062
     Dates: start: 20200929, end: 20200929
  3. TRAZODONE [Interacting]
     Active Substance: TRAZODONE HYDROCHLORIDE
     Indication: Suicide attempt
     Dosage: 30 TABLETS OF 100 MG TRAZODONA (3160A),3 G
     Route: 048
     Dates: start: 20200929, end: 20200929
  4. LORAZEPAM [Interacting]
     Active Substance: LORAZEPAM
     Indication: Suicide attempt
     Dosage: LORAZEPAM (1864A)60  MG
     Route: 048
     Dates: start: 20200929, end: 20200929
  5. AMITRIPTYLINE [Interacting]
     Active Substance: AMITRIPTYLINE
     Indication: Suicide attempt
     Dosage: 25 COM PDE 25 MG,AMITRIPTILINA (395A), 625 MG
     Route: 048
     Dates: start: 20200929, end: 20200929

REACTIONS (3)
  - Depressed level of consciousness [Recovered/Resolved]
  - Acute respiratory failure [Recovered/Resolved]
  - Drug interaction [Unknown]

NARRATIVE: CASE EVENT DATE: 20200929
